FAERS Safety Report 16553127 (Version 1)
Quarter: 2019Q3

REPORT INFORMATION
  Report Type: Spontaneous
  Country: ZA (occurrence: ZA)
  Receive Date: 20190710
  Receipt Date: 20190710
  Transmission Date: 20191004
  Serious: Yes (Hospitalization, Other)
  Sender: FDA-Public Use
  Company Number: ZA-009507513-1907ZAF003245

PATIENT
  Age: 60 Year
  Sex: Male

DRUGS (1)
  1. KEYTRUDA [Suspect]
     Active Substance: PEMBROLIZUMAB
     Indication: RENAL CELL CARCINOMA
     Dosage: UNK, CYCLICAL (FIRST CYCLE)

REACTIONS (3)
  - Product use in unapproved indication [Unknown]
  - Pneumonitis [Recovered/Resolved]
  - Syncope [Recovered/Resolved]
